FAERS Safety Report 11208847 (Version 1)
Quarter: 2015Q2

REPORT INFORMATION
  Report Type: Spontaneous
  Country: US (occurrence: US)
  Receive Date: 20150622
  Receipt Date: 20150622
  Transmission Date: 20150821
  Serious: Yes (Other)
  Sender: FDA-Public Use
  Company Number: US-MPIJNJ-2011-05737

PATIENT
  Age: 73 Year
  Sex: Female
  Weight: 58.96 kg

DRUGS (3)
  1. VELCADE [Suspect]
     Active Substance: BORTEZOMIB
     Indication: PLASMA CELL MYELOMA
     Dosage: UNK
     Route: 058
     Dates: start: 20111107, end: 20111110
  2. DEXAMETHASONE. [Suspect]
     Active Substance: DEXAMETHASONE
     Indication: PLASMA CELL MYELOMA
  3. REVLIMID [Suspect]
     Active Substance: LENALIDOMIDE
     Indication: PLASMA CELL MYELOMA
     Dosage: UNK
     Dates: start: 20111107

REACTIONS (8)
  - Injection site streaking [Unknown]
  - Paraesthesia oral [Unknown]
  - Cough [Unknown]
  - Rash pruritic [Not Recovered/Not Resolved]
  - Injection site reaction [Unknown]
  - Product use issue [Unknown]
  - Swelling face [Unknown]
  - Rash erythematous [Not Recovered/Not Resolved]

NARRATIVE: CASE EVENT DATE: 20111107
